FAERS Safety Report 7437326-3 (Version None)
Quarter: 2011Q2

REPORT INFORMATION
  Report Type: 
  Country: None (occurrence: None)
  Receive Date: 20110426
  Receipt Date: 20110420
  Transmission Date: 20111010
  Serious: Yes (Hospitalization, Other)
  Sender: FDA-Public Use
  Company Number: US-B.I. PHARMACEUTICALS,INC./RIDGEFIELD-2011-BP-11402BP

PATIENT
  Sex: Female

DRUGS (4)
  1. NAPROXEN [Concomitant]
     Indication: RHEUMATOID ARTHRITIS
     Dates: start: 20060101
  2. SPIRIVA [Suspect]
     Indication: CHRONIC OBSTRUCTIVE PULMONARY DISEASE
     Dosage: 18 MCG
     Route: 055
     Dates: start: 20090101
  3. SYNTHROID [Concomitant]
     Indication: HYPOTHYROIDISM
     Dates: start: 19850101
  4. NAPROXEN [Concomitant]
     Indication: OSTEOARTHRITIS

REACTIONS (3)
  - BREAST CANCER [None]
  - DYSPNOEA [None]
  - CARDIAC FAILURE CONGESTIVE [None]
